FAERS Safety Report 8844989 (Version 2)
Quarter: 2012Q4

REPORT INFORMATION
  Report Type: 
  Country: JP (occurrence: JP)
  Receive Date: 20121017
  Receipt Date: 20121030
  Transmission Date: 20130627
  Serious: Yes (Hospitalization, Other)
  Sender: FDA-Public Use
  Company Number: JP-RANBAXY-2012RR-61100

PATIENT
  Age: 46 Year
  Sex: Female

DRUGS (5)
  1. PAROXETINE [Suspect]
     Dosage: 250 mg, UNK
     Route: 065
  2. MIRTAZAPINE [Suspect]
     Dosage: 50 mg, UNK
     Route: 065
  3. BROMAZEPAM [Suspect]
     Dosage: 50 mg, UNK
     Route: 065
  4. NORTRIPTYLINE HYDROCHLORIDE [Interacting]
     Dosage: 3750 mg, UNK
     Route: 065
  5. ESTAZOLAM [Suspect]
     Dosage: 375 mg, UNK
     Route: 065

REACTIONS (8)
  - Arrhythmia [Recovered/Resolved]
  - Depressed level of consciousness [Recovering/Resolving]
  - Hypotension [Unknown]
  - Convulsion [Unknown]
  - Bundle branch block left [Recovered/Resolved]
  - Electrocardiogram QT prolonged [Recovered/Resolved]
  - Overdose [Unknown]
  - Drug interaction [Unknown]
